FAERS Safety Report 9268464 (Version 2)
Quarter: 2013Q2

REPORT INFORMATION
  Report Type: Spontaneous
  Country: US (occurrence: US)
  Receive Date: 20130502
  Receipt Date: 20130607
  Transmission Date: 20140414
  Serious: Yes (Hospitalization)
  Sender: FDA-Public Use
  Company Number: US-B.I. PHARMACEUTICALS,INC./RIDGEFIELD-2013-BI-12018BP

PATIENT
  Age: 74 Year
  Sex: Male
  Weight: 70.13 kg

DRUGS (4)
  1. PRADAXA [Suspect]
     Indication: ANTICOAGULANT THERAPY
     Dates: start: 20110224, end: 20110428
  2. COREG [Concomitant]
  3. BABY ASPIRIN [Concomitant]
  4. FUROSEMIDE [Concomitant]

REACTIONS (1)
  - Gastrointestinal haemorrhage [Unknown]
